FAERS Safety Report 5525361-1 (Version None)
Quarter: 2007Q4

REPORT INFORMATION
  Report Type: 
  Country: None (occurrence: None)
  Receive Date: 20071119
  Receipt Date: 20071112
  Transmission Date: 20080405
  Serious: Yes (Hospitalization, Other)
  Sender: FDA-Public Use
  Company Number: 2007SP023013

PATIENT
  Age: 58 Year
  Sex: Male
  Weight: 70 kg

DRUGS (3)
  1. PEG-INTRON [Suspect]
     Indication: HEPATITIS C
     Dosage: 100 MCG; QW; SC
     Route: 058
     Dates: start: 20070509, end: 20070919
  2. REBETOL [Suspect]
     Indication: HEPATITIS C
     Dosage: 800 MG; QD; PO, 600 MG; QD; PO
     Route: 048
     Dates: start: 20070509, end: 20070801
  3. REBETOL [Suspect]
     Indication: HEPATITIS C
     Dosage: 800 MG; QD; PO, 600 MG; QD; PO
     Route: 048
     Dates: start: 20070802, end: 20070925

REACTIONS (6)
  - ADENOMA BENIGN [None]
  - HEMIANOPIA HETERONYMOUS [None]
  - PITUITARY HAEMORRHAGE [None]
  - PITUITARY TUMOUR [None]
  - PYREXIA [None]
  - VOMITING [None]
